FAERS Safety Report 25167046 (Version 1)
Quarter: 2025Q2

REPORT INFORMATION
  Report Type: Spontaneous
  Country: US (occurrence: US)
  Receive Date: 20250407
  Receipt Date: 20250407
  Transmission Date: 20250716
  Serious: No
  Sender: Haleon PLC
  Company Number: US-HALEON-2236774

PATIENT
  Sex: Male

DRUGS (1)
  1. ADVIL DUAL ACTION WITH ACETAMINOPHEN BACK PAIN [Suspect]
     Active Substance: ACETAMINOPHEN\IBUPROFEN
     Indication: Fatigue

REACTIONS (2)
  - Drug effective for unapproved indication [Unknown]
  - Product use in unapproved indication [Unknown]
